FAERS Safety Report 9051831 (Version 1)
Quarter: 2013Q1

REPORT INFORMATION
  Report Type: Spontaneous
  Country: DE (occurrence: DE)
  Receive Date: 20130207
  Receipt Date: 20130207
  Transmission Date: 20140127
  Serious: Yes (Other)
  Sender: FDA-Public Use
  Company Number: DE-B.I. PHARMACEUTICALS,INC./RIDGEFIELD-2013-DE-00093DE

PATIENT
  Sex: Male
  Weight: 80 kg

DRUGS (6)
  1. PRADAXA [Suspect]
     Indication: ATRIAL FIBRILLATION
     Dosage: 220 MG
     Dates: start: 201206
  2. METOPROLOL [Concomitant]
     Dosage: 23.75 NR
     Route: 048
  3. LISINOPRIL [Concomitant]
     Dosage: 40 NR
     Route: 048
  4. AMLODIPIN [Concomitant]
     Dosage: 10 NR
     Route: 048
  5. SIMVASTATIN [Concomitant]
     Dosage: 40 NR
     Route: 048
  6. CITALOPRAM [Concomitant]
     Dosage: 10 NR
     Route: 048

REACTIONS (2)
  - Hypertensive crisis [Not Recovered/Not Resolved]
  - Subdural haematoma [Not Recovered/Not Resolved]
